FAERS Safety Report 18122694 (Version 2)
Quarter: 2020Q3

REPORT INFORMATION
  Report Type: Report from Study
  Country: GB (occurrence: GB)
  Receive Date: 20200807
  Receipt Date: 20200910
  Transmission Date: 20201103
  Serious: Yes (Other)
  Sender: FDA-Public Use
  Company Number: NVSC2020GB184766

PATIENT
  Sex: Female

DRUGS (1)
  1. HYRIMOZ [Suspect]
     Active Substance: ADALIMUMAB-ADAZ
     Indication: RHEUMATOID ARTHRITIS
     Dosage: 40 MG, Q2W
     Route: 058
     Dates: start: 20200615

REACTIONS (5)
  - Gastroenteritis [Unknown]
  - Product dose omission issue [Unknown]
  - Contusion [Unknown]
  - COVID-19 [Unknown]
  - Arthralgia [Recovering/Resolving]
